FAERS Safety Report 6874607-6 (Version None)
Quarter: 2010Q3

REPORT INFORMATION
  Report Type: 
  Country: None (occurrence: None)
  Receive Date: 20100722
  Receipt Date: 20100713
  Transmission Date: 20110219
  Serious: Yes (Disabling)
  Sender: FDA-Public Use
  Company Number: 2010MA000190

PATIENT
  Age: 54 Year
  Sex: Male

DRUGS (2)
  1. FLUOXETINE [Suspect]
     Indication: DEPRESSION
     Dosage: ; PO
     Route: 048
     Dates: start: 20090914
  2. FLUOXETINE [Concomitant]

REACTIONS (2)
  - BLINDNESS [None]
  - RETINAL DETACHMENT [None]
